FAERS Safety Report 9281620 (Version 2)
Quarter: 2013Q2

REPORT INFORMATION
  Report Type: Report from Study
  Country: IL (occurrence: IL)
  Receive Date: 20130509
  Receipt Date: 20130626
  Transmission Date: 20140414
  Serious: Yes (Hospitalization)
  Sender: FDA-Public Use
  Company Number: IL-BAXTER-2013BAX016616

PATIENT
  Age: 76 Year
  Sex: Female
  Weight: 81 kg

DRUGS (35)
  1. ENDOXAN-1G [Suspect]
     Indication: DIFFUSE LARGE B-CELL LYMPHOMA
     Route: 065
     Dates: start: 20130318
  2. RHUPH20 [Suspect]
     Indication: DIFFUSE LARGE B-CELL LYMPHOMA
     Dosage: 690 (UNITS NOT REPORTED)
     Route: 058
     Dates: start: 20130317
  3. RHUPH20 [Suspect]
     Route: 058
  4. DOXORUBICIN [Suspect]
     Indication: DIFFUSE LARGE B-CELL LYMPHOMA
     Dosage: 86 (UNIT NOT REPORTED)
     Route: 065
     Dates: start: 20130318
  5. VINCRISTINE [Suspect]
     Indication: DIFFUSE LARGE B-CELL LYMPHOMA
     Route: 065
     Dates: start: 20130318
  6. PREDNISONE [Suspect]
     Indication: DIFFUSE LARGE B-CELL LYMPHOMA
     Dosage: 80 (UNITS NOT REPORTED)
     Route: 065
     Dates: start: 20130318
  7. PREDNISONE [Suspect]
     Route: 048
     Dates: start: 20130316, end: 20130319
  8. PREDNISONE [Suspect]
     Route: 048
     Dates: start: 20130320, end: 20130321
  9. RITUXIMAB [Suspect]
     Indication: DIFFUSE LARGE B-CELL LYMPHOMA
     Dosage: 690 UNITS NOT REPORTED
     Route: 042
     Dates: start: 20130317
  10. RITUXIMAB [Suspect]
     Route: 058
  11. GLUBEN [Concomitant]
     Indication: TYPE 2 DIABETES MELLITUS
     Route: 065
  12. ASPIRIN [Concomitant]
     Indication: PRODUCT USED FOR UNKNOWN INDICATION
     Route: 048
     Dates: start: 20130328
  13. ASPIRIN [Concomitant]
     Route: 048
     Dates: start: 20130329
  14. NORMITEN [Concomitant]
     Indication: MYOCARDIAL ISCHAEMIA
     Route: 048
     Dates: start: 2011
  15. NORMITEN [Concomitant]
     Route: 048
     Dates: start: 2011
  16. NORMITEN [Concomitant]
     Route: 048
     Dates: start: 20130328
  17. LIPITOR [Concomitant]
     Indication: HYPERLIPIDAEMIA
     Route: 048
  18. LIPITOR [Concomitant]
     Route: 048
  19. MONOLONG [Concomitant]
     Indication: MYOCARDIAL ISCHAEMIA
     Route: 048
     Dates: start: 197701
  20. ALENDRONATE [Concomitant]
     Indication: OSTEOPOROSIS
     Route: 048
     Dates: start: 200801
  21. OSMO-ADALAT [Concomitant]
     Indication: HYPERTENSION
     Route: 048
     Dates: start: 1997
  22. OSMO-ADALAT [Concomitant]
     Route: 048
     Dates: start: 20130328
  23. METFORMIN HYDROCHLORIDE [Concomitant]
     Indication: TYPE 2 DIABETES MELLITUS
     Route: 048
     Dates: start: 199701
  24. METFORMIN HYDROCHLORIDE [Concomitant]
     Route: 048
     Dates: start: 20130328, end: 20130331
  25. TARGIN [Concomitant]
     Indication: PRODUCT USED FOR UNKNOWN INDICATION
     Route: 048
     Dates: start: 20130316
  26. MAGNESIUM SULFATE [Concomitant]
     Indication: PRODUCT USED FOR UNKNOWN INDICATION
     Dates: start: 20130316, end: 20130317
  27. PHENERGAN [Concomitant]
     Indication: PRODUCT USED FOR UNKNOWN INDICATION
     Route: 042
     Dates: start: 20130317, end: 20130317
  28. HYDROCORTISONE [Concomitant]
     Indication: PRODUCT USED FOR UNKNOWN INDICATION
     Route: 042
     Dates: start: 20130317, end: 20130317
  29. FUSID [Concomitant]
     Indication: PRODUCT USED FOR UNKNOWN INDICATION
     Route: 042
     Dates: start: 20130318, end: 20130319
  30. ALLORIL [Concomitant]
     Indication: PRODUCT USED FOR UNKNOWN INDICATION
     Route: 048
  31. ACAMOL [Concomitant]
     Indication: PRODUCT USED FOR UNKNOWN INDICATION
     Route: 048
     Dates: start: 20130317, end: 20130317
  32. CLEXANE [Concomitant]
     Indication: PRODUCT USED FOR UNKNOWN INDICATION
     Route: 058
     Dates: start: 20130319, end: 20130319
  33. OPTALGIN [Concomitant]
     Indication: PRODUCT USED FOR UNKNOWN INDICATION
     Route: 048
     Dates: start: 20130329, end: 20130329
  34. OMEPRAZOLE [Concomitant]
     Indication: PRODUCT USED FOR UNKNOWN INDICATION
     Route: 048
     Dates: start: 20130316
  35. OMEPRAZOLE [Concomitant]
     Route: 048
     Dates: start: 20130331

REACTIONS (1)
  - Pneumonitis [Recovered/Resolved]
